FAERS Safety Report 9641818 (Version 2)
Quarter: 2013Q4

REPORT INFORMATION
  Report Type: Spontaneous
  Country: DE (occurrence: None)
  Receive Date: 20131021
  Receipt Date: 20131118
  Transmission Date: 20140711
  Serious: Yes (Hospitalization, Disabling)
  Sender: FDA-Public Use
  Company Number: 1310-1302

PATIENT
  Age: 91 Year
  Sex: Male
  Weight: 62 kg

DRUGS (10)
  1. EYLEA [Suspect]
     Indication: AGE-RELATED MACULAR DEGENERATION
     Route: 031
     Dates: start: 20130920, end: 20130920
  2. ADALAT-L (NIFEDIPINE) (MODIFIED-RELEASE TABLET) [Concomitant]
  3. MEVALOTIN(PRAVASTATIN SODIUM) (TABLET) [Concomitant]
  4. BLOPRESS(CANDESARTAN CILEXETIL)(TABLET) [Concomitant]
  5. RIZE(CLOTIAZEPAM) (TABLET) [Concomitant]
  6. JANUVIA(SITAGLIPTIN PHOSPHATE)(TABLET) [Concomitant]
  7. LENDORMIN(BROTIZOLAM) [Concomitant]
  8. FLIVAS(NAFTOPIDIL) [Concomitant]
  9. AMITIZA(LUBIPROSTONE)(CAPSULE) [Concomitant]
  10. TOFRANIL(IMIPRAMINE HYDROCHLORIDE)(TABLET) [Concomitant]

REACTIONS (2)
  - Retinal haemorrhage [None]
  - Retinal haemorrhage [None]
